FAERS Safety Report 7420199-2 (Version None)
Quarter: 2011Q2

REPORT INFORMATION
  Report Type: 
  Country: None (occurrence: None)
  Receive Date: 20110418
  Receipt Date: 20110407
  Transmission Date: 20111010
  Serious: Yes (Hospitalization)
  Sender: FDA-Public Use
  Company Number: US-ASTRAZENECA-2011SE20444

PATIENT
  Age: 86 Year
  Sex: Male

DRUGS (14)
  1. LASIX [Concomitant]
     Dosage: 20 MG MONDAY TILL FRIDAY AT 09:00
     Route: 048
  2. PROTONIX [Concomitant]
     Route: 048
  3. TARCEVA [Suspect]
     Indication: NON-SMALL CELL LUNG CANCER
     Dosage: DAILY
     Route: 048
     Dates: start: 20100903
  4. NORVASC [Concomitant]
     Route: 048
  5. ZOCOR [Concomitant]
     Route: 048
  6. DUONEB [Concomitant]
     Dosage: ONE UNIT DOSE REGULARLY TAKE EVERY FOUR HOURS WHILE AWAKE.
  7. TENORMIN [Concomitant]
     Route: 048
  8. SLOW-MAG [Concomitant]
     Route: 048
  9. FLOMAX [Concomitant]
     Route: 048
  10. FASLODEX [Suspect]
     Indication: NON-SMALL CELL LUNG CANCER
     Route: 030
     Dates: start: 20100903
  11. MIRALAX [Concomitant]
     Dosage: ONE PACKET DAILY (17 GRAMS PACKET)
     Route: 048
  12. NITROSTAT [Concomitant]
     Route: 060
  13. NORCO [Concomitant]
     Dosage: 5-325MG 1 TABLET EVERY FOUR HOURS AS REQUIRED.
     Route: 048
  14. NEURONTIN [Concomitant]
     Route: 048

REACTIONS (4)
  - HYPOMAGNESAEMIA [None]
  - HYPOKALAEMIA [None]
  - ASTHENIA [None]
  - PNEUMONIA [None]
